FAERS Safety Report 9147367 (Version 1)
Quarter: 2013Q1

REPORT INFORMATION
  Report Type: Spontaneous
  Country: US (occurrence: US)
  Receive Date: 20130307
  Receipt Date: 20130307
  Transmission Date: 20140127
  Serious: Yes (Other)
  Sender: FDA-Public Use
  Company Number: US-GLAXOSMITHKLINE-A1014973A

PATIENT
  Sex: Male

DRUGS (1)
  1. VOTRIENT [Suspect]
     Indication: RENAL CANCER
     Dosage: 200MG UNKNOWN
     Route: 048

REACTIONS (5)
  - Deafness [Unknown]
  - Drug ineffective [Unknown]
  - Dyspnoea [Unknown]
  - Dry mouth [Unknown]
  - Skin exfoliation [Unknown]
